FAERS Safety Report 6826148-X (Version None)
Quarter: 2010Q3

REPORT INFORMATION
  Report Type: 
  Country: None (occurrence: None)
  Receive Date: 20100709
  Receipt Date: 20100628
  Transmission Date: 20110219
  Serious: Yes (Hospitalization, Other)
  Sender: FDA-Public Use
  Company Number: SE-JNJFOC-20090904849

PATIENT
  Weight: 1.08 kg

DRUGS (14)
  1. INFLIXIMAB [Suspect]
     Indication: DRUG EXPOSURE DURING PREGNANCY
     Route: 042
  2. INFLIXIMAB [Suspect]
     Route: 042
  3. INFLIXIMAB [Suspect]
     Dosage: 7TH DOSE
     Route: 042
  4. INFLIXIMAB [Suspect]
     Dosage: 18TH INFUSION
     Route: 042
  5. INFLIXIMAB [Suspect]
     Route: 042
  6. FOLIC ACID [Concomitant]
     Indication: DRUG EXPOSURE DURING PREGNANCY
  7. NITROFURANTOIN [Concomitant]
     Indication: DRUG EXPOSURE DURING PREGNANCY
  8. METHOTREXATE [Concomitant]
     Indication: DRUG EXPOSURE DURING PREGNANCY
  9. BUDESONIDE [Concomitant]
     Indication: DRUG EXPOSURE DURING PREGNANCY
  10. ALBUTEROL [Concomitant]
     Indication: DRUG EXPOSURE DURING PREGNANCY
  11. FUROSEMIDE [Concomitant]
     Indication: DRUG EXPOSURE DURING PREGNANCY
  12. LACTULOSE [Concomitant]
     Indication: DRUG EXPOSURE DURING PREGNANCY
  13. PROTOVITA [Concomitant]
     Indication: DRUG EXPOSURE DURING PREGNANCY
  14. INTRAVENOUS LIPIDS [Concomitant]
     Indication: DRUG EXPOSURE DURING PREGNANCY

REACTIONS (12)
  - BACTERIAL SEPSIS [None]
  - BRONCHOPULMONARY DYSPLASIA [None]
  - CONGENITAL CARDIOVASCULAR ANOMALY [None]
  - FEEDING DISORDER NEONATAL [None]
  - JAUNDICE NEONATAL [None]
  - NEONATAL RESPIRATORY DISTRESS SYNDROME [None]
  - ORAL CANDIDIASIS [None]
  - PREMATURE BABY [None]
  - SMALL FOR DATES BABY [None]
  - STAPHYLOCOCCAL INFECTION [None]
  - UREAPLASMA INFECTION [None]
  - WOUND [None]
